FAERS Safety Report 23088450 (Version 1)
Quarter: 2023Q4

REPORT INFORMATION
  Report Type: Other
  Country: IN (occurrence: IN)
  Receive Date: 20231020
  Receipt Date: 20231020
  Transmission Date: 20240109
  Serious: Yes (Hospitalization, Other)
  Sender: FDA-Public Use
  Company Number: IN-Bion-012239

PATIENT
  Age: 30 Year
  Sex: Female

DRUGS (1)
  1. DICLOFENAC POTASSIUM [Suspect]
     Active Substance: DICLOFENAC POTASSIUM
     Indication: Sacroiliitis

REACTIONS (4)
  - Pulmonary oedema [Unknown]
  - Pericardial effusion [Unknown]
  - Cardiac failure [Unknown]
  - Exposure during pregnancy [Unknown]
